FAERS Safety Report 9839757 (Version 1)
Quarter: 2014Q1

REPORT INFORMATION
  Report Type: Spontaneous
  Country: US (occurrence: US)
  Receive Date: 20140124
  Receipt Date: 20140124
  Transmission Date: 20141002
  Serious: No
  Sender: FDA-Public Use
  Company Number: US-BIOGENIDEC-2014BI005701

PATIENT
  Age: 41 Year
  Sex: Male
  Weight: 108 kg

DRUGS (6)
  1. TECFIDERA [Suspect]
     Indication: PRODUCT USED FOR UNKNOWN INDICATION
     Route: 048
  2. CYMBALTA [Concomitant]
     Route: 048
  3. NEURONTIN [Concomitant]
     Route: 048
  4. TEGRETOL [Concomitant]
     Route: 048
  5. TRAZODONE [Concomitant]
     Route: 048
  6. VITAMIN D [Concomitant]
     Route: 048

REACTIONS (2)
  - Decreased interest [Unknown]
  - Anhedonia [Unknown]
